FAERS Safety Report 10042897 (Version 2)
Quarter: 2014Q2

REPORT INFORMATION
  Report Type: Spontaneous
  Country: LU (occurrence: LU)
  Receive Date: 20140328
  Receipt Date: 20140410
  Transmission Date: 20141212
  Serious: Yes (Hospitalization)
  Sender: FDA-Public Use
  Company Number: LU-AMGEN-LUXSP2014021724

PATIENT
  Age: 49 Year
  Sex: Female

DRUGS (3)
  1. ENBREL [Suspect]
     Indication: RHEUMATOID ARTHRITIS
     Dosage: 50 MG, QWK
     Route: 058
     Dates: start: 201109
  2. ARAVA [Concomitant]
     Dosage: 20 MG, QD
  3. NEXIAM                             /01479302/ [Concomitant]
     Dosage: 20 MG, QD

REACTIONS (3)
  - Abdominal pain [Recovering/Resolving]
  - Diverticulitis [Recovering/Resolving]
  - Colonic abscess [Recovering/Resolving]
